FAERS Safety Report 5035152-6 (Version None)
Quarter: 2006Q2

REPORT INFORMATION
  Report Type: 
  Country: None (occurrence: None)
  Receive Date: 20060519
  Receipt Date: 20060127
  Transmission Date: 20061013
  Serious: No
  Sender: FDA-Public Use
  Company Number: TPA2006A00159

PATIENT
  Age: 47 Year
  Sex: Female
  Weight: 72.5755 kg

DRUGS (3)
  1. ROZEREM [Suspect]
     Indication: HORMONE REPLACEMENT THERAPY
     Dosage: 8 MG, HS, PER ORAL
     Route: 048
     Dates: start: 20060114
  2. ROZEREM [Suspect]
     Indication: INSOMNIA
     Dosage: 8 MG, HS, PER ORAL
     Route: 048
     Dates: start: 20060114
  3. COMPOUNDED HORMONE CREAM(HORMONES AND RELATED AGENTS) [Concomitant]

REACTIONS (1)
  - INITIAL INSOMNIA [None]
